FAERS Safety Report 6104517-3 (Version None)
Quarter: 2009Q1

REPORT INFORMATION
  Report Type: 
  Country: None (occurrence: None)
  Receive Date: 20090227
  Receipt Date: 20080418
  Transmission Date: 20090719
  Serious: Yes (Hospitalization)
  Sender: FDA-Public Use
  Company Number: RB-0859-2008

PATIENT
  Age: 29 Year
  Sex: Female

DRUGS (4)
  1. SUBOXONE [Suspect]
     Indication: DRUG DEPENDENCE
     Dosage: 4 MG QD SUBLINGUAL;  8 MG BID SUBLINGUAL
     Route: 060
     Dates: start: 20080404, end: 20080405
  2. SUBOXONE [Suspect]
     Indication: DRUG DEPENDENCE
     Dosage: 4 MG QD SUBLINGUAL;  8 MG BID SUBLINGUAL
     Route: 060
     Dates: start: 20080410, end: 20080413
  3. SUBOXONE [Suspect]
     Indication: DRUG DEPENDENCE
     Dosage: 4 MG QD SUBLINGUAL;  8 MG BID SUBLINGUAL
     Route: 060
     Dates: start: 20080414
  4. LAMICTAL [Concomitant]

REACTIONS (5)
  - AGITATION [None]
  - DRUG WITHDRAWAL SYNDROME [None]
  - INSOMNIA [None]
  - PARAESTHESIA [None]
  - TACHYCARDIA [None]
